FAERS Safety Report 19477641 (Version 1)
Quarter: 2021Q2

REPORT INFORMATION
  Report Type: Spontaneous
  Country: US (occurrence: US)
  Receive Date: 20210630
  Receipt Date: 20210630
  Transmission Date: 20210717
  Serious: Yes (Hospitalization, Other)
  Sender: FDA-Public Use
  Company Number: US-ABBVIE-21K-163-3967938-00

PATIENT
  Age: 21 Year

DRUGS (3)
  1. CIMZIA [Concomitant]
     Active Substance: CERTOLIZUMAB PEGOL
     Indication: PRODUCT USED FOR UNKNOWN INDICATION
     Dates: end: 202103
  2. DEXTROSE. [Suspect]
     Active Substance: DEXTROSE
     Indication: PRODUCT USED FOR UNKNOWN INDICATION
     Dosage: 50 PLUS DEXTROSE INJECTIONS, SIX WEEKLY INJECTIONS
     Route: 065
     Dates: start: 20210503
  3. HUMIRA [Suspect]
     Active Substance: ADALIMUMAB
     Indication: PRODUCT USED FOR UNKNOWN INDICATION
     Route: 058
     Dates: start: 202012, end: 2021

REACTIONS (21)
  - Hip deformity [Recovering/Resolving]
  - Pelvic floor dysfunction [Unknown]
  - Pain [Unknown]
  - Ligament sprain [Unknown]
  - Asthenia [Unknown]
  - Feeling abnormal [Unknown]
  - Arthralgia [Unknown]
  - Gastrointestinal disorder [Unknown]
  - Drug ineffective [Unknown]
  - Eating disorder [Unknown]
  - Myoclonic epilepsy [Unknown]
  - Drug reaction with eosinophilia and systemic symptoms [Unknown]
  - Back disorder [Unknown]
  - Eosinophil count increased [Unknown]
  - Hypoaesthesia [Unknown]
  - Depression [Unknown]
  - Mental disorder [Unknown]
  - Fatigue [Unknown]
  - Discomfort [Unknown]
  - Back pain [Unknown]
  - Kidney infection [Unknown]
